FAERS Safety Report 10072743 (Version 1)
Quarter: 2014Q2

REPORT INFORMATION
  Report Type: Spontaneous
  Country: US (occurrence: US)
  Receive Date: 20140411
  Receipt Date: 20140411
  Transmission Date: 20141212
  Serious: No
  Sender: FDA-Public Use
  Company Number: US-009507513-1404USA002949

PATIENT
  Sex: Female

DRUGS (2)
  1. SINEMET [Suspect]
     Dosage: UNK UNK, TID
     Route: 048
     Dates: start: 201307
  2. COGENTIN [Concomitant]
     Indication: PARKINSON^S DISEASE
     Dosage: UNK

REACTIONS (1)
  - Drug ineffective [Not Recovered/Not Resolved]
